FAERS Safety Report 17028263 (Version 4)
Quarter: 2019Q4

REPORT INFORMATION
  Report Type: Report from Study
  Country: US (occurrence: US)
  Receive Date: 20191113
  Receipt Date: 20191219
  Transmission Date: 20200122
  Serious: Yes (Death, Hospitalization)
  Sender: FDA-Public Use
  Company Number: US-ACTELION-A-NJ2019-197798

PATIENT
  Age: 60 Year
  Sex: Female
  Weight: 74.38 kg

DRUGS (37)
  1. ENOXAPARIN [Concomitant]
     Active Substance: ENOXAPARIN
     Dosage: 120 MG, QD
     Route: 042
  2. LACTULOSE. [Concomitant]
     Active Substance: LACTULOSE
     Dosage: 15 ML, PRN
  3. OXYGEN. [Concomitant]
     Active Substance: OXYGEN
     Dosage: 6 L
  4. OXYGEN. [Concomitant]
     Active Substance: OXYGEN
     Dosage: 4 UNK
  5. AMLODIPINE [Concomitant]
     Active Substance: AMLODIPINE BESYLATE
     Dosage: 5 MG, QD
     Route: 048
  6. TYLENOL [Concomitant]
     Active Substance: ACETAMINOPHEN
     Dosage: 325 MG, Q4HRS, PRN
     Route: 048
  7. DULCOLAX NOS [Concomitant]
     Active Substance: BISACODYL OR DOCUSATE SODIUM
     Dosage: 10 MG, PRN
  8. MAXZIDE [Concomitant]
     Active Substance: HYDROCHLOROTHIAZIDE\TRIAMTERENE
     Dosage: 25 MG, QD
     Route: 048
  9. ZANAFLEX [Concomitant]
     Active Substance: TIZANIDINE HYDROCHLORIDE
     Dosage: 4 MG, BID, PRN
  10. VALTREX [Concomitant]
     Active Substance: VALACYCLOVIR HYDROCHLORIDE
     Dosage: 500 MG, BID
     Route: 048
  11. OXYGEN. [Concomitant]
     Active Substance: OXYGEN
     Dosage: 15 L/MIN
  12. ALPRAZOLAM. [Concomitant]
     Active Substance: ALPRAZOLAM
     Dosage: 0.25 MG, BID, PRN
  13. ICAR-C [Concomitant]
     Route: 048
  14. IPRATROPIUM [Concomitant]
     Active Substance: IPRATROPIUM
     Dosage: 500 MCG, Q4HRS
     Route: 055
  15. LOTEPREDNOL ETABONATE [Concomitant]
     Active Substance: LOTEPREDNOL ETABONATE
     Dosage: 1 DROP, QD
     Route: 046
  16. POTASSIUM CHLORIDE. [Concomitant]
     Active Substance: POTASSIUM CHLORIDE
     Dosage: 10 MEQ, TID
     Route: 048
  17. RANITIDINE. [Concomitant]
     Active Substance: RANITIDINE
     Dosage: 300 MG, QPM
  18. COUMADIN [Concomitant]
     Active Substance: WARFARIN SODIUM
     Dosage: 5 UNK
  19. TRACLEER [Suspect]
     Active Substance: BOSENTAN
     Indication: PULMONARY ARTERIAL HYPERTENSION
     Dosage: 125 MG, BID
     Route: 048
     Dates: start: 2015
  20. PREDNISONE. [Concomitant]
     Active Substance: PREDNISONE
     Dosage: 20 MG, BID
     Route: 048
  21. BUPROPION. [Concomitant]
     Active Substance: BUPROPION
     Dosage: 10 MG, BID
     Route: 048
  22. DORYX [Concomitant]
     Active Substance: DOXYCYCLINE HYCLATE
     Dosage: 100 MG, BID
  23. ZIRGAN [Concomitant]
     Active Substance: GANCICLOVIR
     Dosage: 1 DROP, OD
     Route: 046
  24. MIRTAZAPINE. [Concomitant]
     Active Substance: MIRTAZAPINE
     Dosage: 30 MG, QD
     Route: 048
  25. MYCOPHENOLATE [Concomitant]
     Active Substance: MYCOPHENOLIC ACID
     Dosage: 500 MG, TID
     Route: 048
  26. PANTOPRAZOLE [Concomitant]
     Active Substance: PANTOPRAZOLE
     Dosage: 40 MG, QD
  27. PROLIA [Concomitant]
     Active Substance: DENOSUMAB
     Dosage: 60 MG/ML
     Route: 061
  28. COUMADIN [Concomitant]
     Active Substance: WARFARIN SODIUM
     Dosage: 1 MG
  29. VITAMIN D3 [Concomitant]
     Active Substance: CHOLECALCIFEROL
     Dosage: 4000 UNK
     Route: 048
  30. LEXAPRO [Concomitant]
     Active Substance: ESCITALOPRAM OXALATE
     Dosage: 20 MG, QD
  31. LOSARTAN. [Concomitant]
     Active Substance: LOSARTAN
     Dosage: 25 MG, QD
     Route: 048
  32. NYSTATIN. [Concomitant]
     Active Substance: NYSTATIN
     Dosage: 5 ML, TID
     Route: 048
  33. CEFTIN [Concomitant]
     Active Substance: CEFUROXIME AXETIL
     Dosage: 500 MG
  34. VITAMIN B12 [Concomitant]
     Active Substance: CYANOCOBALAMIN
     Dosage: 2500 MCG, QD
  35. TRACLEER [Suspect]
     Active Substance: BOSENTAN
     Indication: PULMONARY FIBROSIS
  36. ALBUTEROL. [Concomitant]
     Active Substance: ALBUTEROL
     Dosage: 2.5 MG, Q4HRS, PRN
     Route: 055
  37. BACTRIM DS [Concomitant]
     Active Substance: SULFAMETHOXAZOLE\TRIMETHOPRIM
     Dosage: 800 MG, Q12HRS
     Route: 048

REACTIONS (18)
  - Pulmonary fibrosis [Fatal]
  - Scleroderma [Fatal]
  - Oxygen consumption increased [Unknown]
  - Tachypnoea [Unknown]
  - Oxygen saturation decreased [Unknown]
  - Sinus disorder [Unknown]
  - International normalised ratio abnormal [Unknown]
  - Chills [Unknown]
  - Dependence on oxygen therapy [Unknown]
  - Dyspnoea [Unknown]
  - Chest discomfort [Unknown]
  - Productive cough [Unknown]
  - Dyspnoea exertional [Unknown]
  - Cough [Unknown]
  - Brain natriuretic peptide increased [Unknown]
  - Interstitial lung disease [Unknown]
  - White blood cell count increased [Unknown]
  - Blood urea increased [Unknown]

NARRATIVE: CASE EVENT DATE: 201910
